FAERS Safety Report 14490879 (Version 2)
Quarter: 2018Q1

REPORT INFORMATION
  Report Type: Report from Study
  Country: DE (occurrence: DE)
  Receive Date: 20180206
  Receipt Date: 20180213
  Transmission Date: 20180509
  Serious: Yes (Hospitalization, Other)
  Sender: FDA-Public Use
  Company Number: DE-IPSEN BIOPHARMACEUTICALS, INC.-2018-00880

PATIENT
  Age: 66 Year
  Sex: Male
  Weight: 86 kg

DRUGS (26)
  1. PEGYLATED LIPOSOMAL IRINOTECAN [Suspect]
     Active Substance: IRINOTECAN HYDROCHLORIDE
     Indication: COLORECTAL CANCER
     Dosage: 360 MG
     Route: 042
     Dates: start: 20150921, end: 20150921
  2. PEGYLATED LIPOSOMAL IRINOTECAN [Suspect]
     Active Substance: IRINOTECAN HYDROCHLORIDE
     Dosage: 288 MG
     Route: 042
     Dates: start: 20160509, end: 20160509
  3. 5-FLUOROURACIL [Suspect]
     Active Substance: FLUOROURACIL
     Route: 041
     Dates: start: 20150921, end: 20151116
  4. RANITIDIN [Concomitant]
     Active Substance: RANITIDINE HYDROCHLORIDE
  5. AVASTIN [Suspect]
     Active Substance: BEVACIZUMAB
     Route: 042
     Dates: start: 20160229, end: 20160509
  6. FOLINIC ACID [Suspect]
     Active Substance: LEUCOVORIN
     Dates: start: 20151130, end: 20160509
  7. ONDANSETRON [Concomitant]
     Active Substance: ONDANSETRON
  8. PEGYLATED LIPOSOMAL IRINOTECAN [Suspect]
     Active Substance: IRINOTECAN HYDROCHLORIDE
     Dosage: 288 MG
     Route: 042
     Dates: start: 20151102, end: 20160118
  9. DIMETINDENE MALEATE [Concomitant]
     Active Substance: DIMETHINDENE MALEATE
  10. DEXAMETHASON [Concomitant]
     Active Substance: DEXAMETHASONE
  11. EMEND [Concomitant]
     Active Substance: APREPITANT
  12. 5-FLUOROURACIL [Suspect]
     Active Substance: FLUOROURACIL
     Indication: COLORECTAL CANCER
     Route: 040
     Dates: start: 20150921, end: 20151116
  13. 5-FLUOROURACIL [Suspect]
     Active Substance: FLUOROURACIL
     Route: 041
     Dates: start: 20151130, end: 20160510
  14. MOXIFLOXACIN. [Concomitant]
     Active Substance: MOXIFLOXACIN
  15. 5-FLUOROURACIL [Suspect]
     Active Substance: FLUOROURACIL
     Route: 040
     Dates: start: 20150921, end: 20151116
  16. PEGYLATED LIPOSOMAL IRINOTECAN [Suspect]
     Active Substance: IRINOTECAN HYDROCHLORIDE
     Indication: OFF LABEL USE
     Dosage: 287 MG
     Route: 042
     Dates: start: 20151019, end: 20151019
  17. FOLINIC ACID [Suspect]
     Active Substance: LEUCOVORIN
     Indication: COLORECTAL CANCER
     Dates: start: 20150921, end: 20151116
  18. CIPROFLOXACIN. [Concomitant]
     Active Substance: CIPROFLOXACIN
     Dates: start: 20151009, end: 20151015
  19. FENISTIL [Concomitant]
     Active Substance: DIMETHINDENE
  20. PEGYLATED LIPOSOMAL IRINOTECAN [Suspect]
     Active Substance: IRINOTECAN HYDROCHLORIDE
     Dosage: 290 MG
     Route: 042
     Dates: start: 20160330, end: 20160418
  21. 5-FLUOROURACIL [Suspect]
     Active Substance: FLUOROURACIL
     Route: 041
     Dates: start: 20151130, end: 20160510
  22. PANTOPRAZOL [Concomitant]
     Active Substance: PANTOPRAZOLE SODIUM
  23. PEGYLATED LIPOSOMAL IRINOTECAN [Suspect]
     Active Substance: IRINOTECAN HYDROCHLORIDE
     Dosage: 290 MG
     Route: 042
     Dates: start: 20160208, end: 20160208
  24. PEGYLATED LIPOSOMAL IRINOTECAN [Suspect]
     Active Substance: IRINOTECAN HYDROCHLORIDE
     Dosage: 288 MG
     Route: 042
     Dates: start: 20160229, end: 20160229
  25. AVASTIN [Suspect]
     Active Substance: BEVACIZUMAB
     Indication: COLORECTAL CANCER
     Dates: start: 20150921, end: 20150921
  26. BENAZEPRIL [Concomitant]
     Active Substance: BENAZEPRIL HYDROCHLORIDE

REACTIONS (4)
  - Inappropriate schedule of drug administration [Unknown]
  - Off label use [Unknown]
  - Diarrhoea [Recovered/Resolved]
  - Leukopenia [Recovered/Resolved]

NARRATIVE: CASE EVENT DATE: 20160317
